FAERS Safety Report 22237356 (Version 1)
Quarter: 2023Q2

REPORT INFORMATION
  Report Type: Spontaneous
  Country: DE (occurrence: DE)
  Receive Date: 20230421
  Receipt Date: 20230421
  Transmission Date: 20230721
  Serious: Yes (Other)
  Sender: FDA-Public Use
  Company Number: DE-ALKEM LABORATORIES LIMITED-DE-ALKEM-2023-04139

PATIENT
  Age: 20 Year
  Sex: Male

DRUGS (2)
  1. DIMETHYL FUMARATE [Suspect]
     Active Substance: DIMETHYL FUMARATE
     Indication: Product used for unknown indication
     Dosage: UNK
     Route: 065
  2. FINGOLIMOD [Suspect]
     Active Substance: FINGOLIMOD
     Indication: Relapsing multiple sclerosis
     Dosage: UNK
     Route: 065

REACTIONS (10)
  - Relapsing multiple sclerosis [Unknown]
  - Movement disorder [Unknown]
  - Dysaesthesia [Unknown]
  - Balance disorder [Unknown]
  - Multiple sclerosis [Unknown]
  - Disturbance in attention [Unknown]
  - Rebound effect [Unknown]
  - Fatigue [Unknown]
  - General physical health deterioration [Unknown]
  - JC polyomavirus test positive [Unknown]
